FAERS Safety Report 8042152-0 (Version None)
Quarter: 2012Q1

REPORT INFORMATION
  Report Type: 
  Country: None (occurrence: None)
  Receive Date: 20120112
  Receipt Date: 20111228
  Transmission Date: 20120608
  Serious: Yes (Death)
  Sender: FDA-Public Use
  Company Number: US-UCBSA-049064

PATIENT
  Age: 36 Year
  Sex: Male

DRUGS (5)
  1. ACETAMINOPHEN AND HYDROCODONE BITARTRATE [Suspect]
     Route: 048
  2. ETHANOL [Suspect]
     Route: 048
  3. ALPRAZOLAM [Suspect]
     Route: 048
  4. MORPHINE [Suspect]
     Route: 048
  5. DIPHENHYDRAMINE HCL [Suspect]
     Route: 048

REACTIONS (1)
  - DRUG ABUSE [None]
